FAERS Safety Report 16996731 (Version 1)
Quarter: 2019Q4

REPORT INFORMATION
  Report Type: Spontaneous
  Country: US (occurrence: US)
  Receive Date: 20191106
  Receipt Date: 20191106
  Transmission Date: 20200122
  Serious: Yes (Hospitalization, Other)
  Sender: FDA-Public Use
  Company Number: US-ASTRAZENECA-2019SF53926

PATIENT
  Age: 90 Year
  Sex: Female
  Weight: 45 kg

DRUGS (3)
  1. REMERON [Concomitant]
     Active Substance: MIRTAZAPINE
  2. SEROQUEL [Suspect]
     Active Substance: QUETIAPINE FUMARATE
     Indication: PRODUCT USED FOR UNKNOWN INDICATION
     Dosage: 25 MG IN AM
     Route: 048
  3. SEROQUEL [Suspect]
     Active Substance: QUETIAPINE FUMARATE
     Indication: PRODUCT USED FOR UNKNOWN INDICATION
     Dosage: 25 MG IN AM AND 100 MG AT HS
     Route: 048

REACTIONS (5)
  - Cardiac failure congestive [Unknown]
  - Pneumonia [Unknown]
  - Heart rate decreased [Recovered/Resolved]
  - Psychotic disorder [Unknown]
  - Electrocardiogram QT interval abnormal [Recovered/Resolved]

NARRATIVE: CASE EVENT DATE: 201910
